FAERS Safety Report 7592655-8 (Version None)
Quarter: 2011Q3

REPORT INFORMATION
  Report Type: 
  Country: None (occurrence: None)
  Receive Date: 20110706
  Receipt Date: 20110628
  Transmission Date: 20111222
  Serious: Yes (Other)
  Sender: FDA-Public Use
  Company Number: GR-PFIZER INC-2011143791

PATIENT
  Sex: Male

DRUGS (1)
  1. XANAX [Suspect]
     Dosage: 1 MG, 5-6 TABLETS PER DAY
     Dates: start: 20090101, end: 20110623

REACTIONS (7)
  - CEREBROVASCULAR ACCIDENT [None]
  - ABNORMAL BEHAVIOUR [None]
  - HALLUCINATION [None]
  - IRRITABILITY [None]
  - SELF-MEDICATION [None]
  - DEPENDENCE [None]
  - TREMOR [None]
